FAERS Safety Report 8744215 (Version 2)
Quarter: 2012Q4

REPORT INFORMATION
  Report Type: 
  Country: GB (occurrence: GB)
  Receive Date: 20120824
  Receipt Date: 20121023
  Transmission Date: 20130627
  Serious: Yes (Other)
  Sender: FDA-Public Use
  Company Number: GB-009507513-1208GBR009001

PATIENT

DRUGS (3)
  1. INVESTIGATIONAL PRODUCT [Suspect]
     Indication: BLOOD PRESSURE
     Dosage: 100 mg, UNK
     Route: 048
  2. AMLODIPINE [Suspect]
     Indication: BLOOD PRESSURE
     Dosage: UNK
     Route: 048
  3. ISTIN [Concomitant]

REACTIONS (8)
  - Dyspnoea [Recovered/Resolved]
  - Tracheal disorder [Recovered/Resolved]
  - Mouth ulceration [Recovered/Resolved]
  - Chest pain [Recovered/Resolved]
  - Chest discomfort [Recovered/Resolved]
  - Cough [Recovered/Resolved]
  - Product substitution issue [None]
  - Chest discomfort [None]
